FAERS Safety Report 17518986 (Version 1)
Quarter: 2020Q1

REPORT INFORMATION
  Report Type: Spontaneous
  Country: CA (occurrence: CA)
  Receive Date: 20200310
  Receipt Date: 20200310
  Transmission Date: 20200409
  Serious: Yes (Other)
  Sender: FDA-Public Use
  Company Number: CA-TEVA-2020-CA-1198162

PATIENT
  Age: 55 Year
  Sex: Female

DRUGS (12)
  1. SYNTHROID [Concomitant]
     Active Substance: LEVOTHYROXINE SODIUM
  2. DEXAMETHASONE. [Suspect]
     Active Substance: DEXAMETHASONE
     Indication: PAIN
     Route: 042
  3. ENBREL [Suspect]
     Active Substance: ETANERCEPT
     Indication: RHEUMATOID ARTHRITIS
     Route: 058
  4. CELEBREX [Concomitant]
     Active Substance: CELECOXIB
  5. METHOTREXATE. [Suspect]
     Active Substance: METHOTREXATE
     Indication: PRODUCT USED FOR UNKNOWN INDICATION
     Route: 065
  6. CLONAZEPAM. [Concomitant]
     Active Substance: CLONAZEPAM
  7. DOMPERIDONE [Concomitant]
     Active Substance: DOMPERIDONE
  8. SULFASALAZINE. [Concomitant]
     Active Substance: SULFASALAZINE
  9. FOLIC ACID. [Concomitant]
     Active Substance: FOLIC ACID
  10. PANTOPRAZOLE [Concomitant]
     Active Substance: PANTOPRAZOLE
  11. DOCUSATE [Concomitant]
     Active Substance: DOCUSATE
  12. NITROFURANTOIN. [Concomitant]
     Active Substance: NITROFURANTOIN

REACTIONS (24)
  - Headache [Unknown]
  - Injection site bruising [Unknown]
  - Nausea [Unknown]
  - Abdominal pain upper [Unknown]
  - Pain [Unknown]
  - Bronchospasm [Unknown]
  - Drug ineffective [Unknown]
  - Generalised oedema [Unknown]
  - Hypersomnia [Unknown]
  - Injection site mass [Unknown]
  - Lung disorder [Unknown]
  - Malaise [Unknown]
  - Pain in extremity [Unknown]
  - Papillary thyroid cancer [Unknown]
  - Pulmonary mass [Unknown]
  - Weight increased [Unknown]
  - Dyspnoea [Unknown]
  - Disturbance in social behaviour [Unknown]
  - Cough [Unknown]
  - Fatigue [Unknown]
  - Gait disturbance [Unknown]
  - Inguinal hernia [Unknown]
  - Oxygen saturation decreased [Unknown]
  - Walking aid user [Unknown]
